FAERS Safety Report 17636503 (Version 1)
Quarter: 2020Q2

REPORT INFORMATION
  Report Type: Spontaneous
  Country: NP (occurrence: NP)
  Receive Date: 20200407
  Receipt Date: 20200407
  Transmission Date: 20200713
  Serious: Yes (Life-Threatening)
  Sender: FDA-Public Use
  Company Number: NP-ACS-001681

PATIENT
  Age: 28 Year
  Sex: Female

DRUGS (3)
  1. METRONIDAZOLE. [Concomitant]
     Active Substance: METRONIDAZOLE
     Dosage: 2 GM SINGLE DOSE POSTOPERATIVELY?????
     Route: 042
  2. CEFAZOLIN 1G [Suspect]
     Active Substance: CEFAZOLIN
     Dosage: 1 G PRE-OPERATIVELY AND THEN TOTAL 3 DOSES THEREAFTER 8 HOURLY
     Route: 042
  3. CEFTRIAXONE. [Suspect]
     Active Substance: CEFTRIAXONE
     Route: 042

REACTIONS (3)
  - Toxic epidermal necrolysis [Recovered/Resolved]
  - Leukaemoid reaction [Recovered/Resolved]
  - Pyrexia [Recovered/Resolved]
